FAERS Safety Report 10066808 (Version 2)
Quarter: 2014Q2

REPORT INFORMATION
  Report Type: Report from Study
  Country: CN (occurrence: CN)
  Receive Date: 20140408
  Receipt Date: 20140417
  Transmission Date: 20141212
  Serious: Yes (Death, Hospitalization, Other)
  Sender: FDA-Public Use
  Company Number: PHHY2014CN041234

PATIENT
  Age: 50 Year
  Sex: Male
  Weight: 57 kg

DRUGS (11)
  1. GLIVEC [Suspect]
     Indication: ACUTE LYMPHOCYTIC LEUKAEMIA
     Dosage: 400 MG, QD
     Route: 048
     Dates: start: 20120808, end: 20131105
  2. GLIVEC [Suspect]
     Dosage: 800 MG, QD
     Route: 048
     Dates: start: 20131105, end: 20131127
  3. MITOXANTRONE [Concomitant]
     Indication: ACUTE LYMPHOCYTIC LEUKAEMIA
     Dosage: 10 MG, QD
     Route: 042
     Dates: start: 20131127, end: 20131130
  4. CYTARABINE [Concomitant]
     Indication: ACUTE LYMPHOCYTIC LEUKAEMIA
     Dosage: 1 G, Q12H
     Route: 042
     Dates: start: 20131127, end: 20131130
  5. LANSOPRAZOLE [Concomitant]
     Dosage: UNK UKN, UNK
     Dates: start: 20131105
  6. AMPHOTERICIN B [Concomitant]
     Dosage: UNK UKN, UNK
     Dates: start: 20131105
  7. OXYCODONE HYDROCHLORIDE [Concomitant]
     Dosage: UNK UKN, UNK
     Dates: start: 20131105
  8. CREATINE PHOSPHATE [Concomitant]
     Dosage: UNK UKN, UNK
     Dates: start: 20131105
  9. MANNITOL [Concomitant]
     Dosage: UNK UKN, UNK
     Dates: start: 20131105
  10. LAMIVUDINE [Concomitant]
     Dosage: UNK UKN, UNK
     Dates: start: 20131105
  11. CARBAZOCHROME SODIUM SULFONATE [Concomitant]
     Dosage: UNK UKN, UNK
     Dates: start: 20131105

REACTIONS (10)
  - Septic shock [Fatal]
  - Escherichia infection [Fatal]
  - Pyrexia [Fatal]
  - Heart rate increased [Fatal]
  - Blood pressure decreased [Fatal]
  - Loss of consciousness [Fatal]
  - Coma [Fatal]
  - Pupillary light reflex tests abnormal [Fatal]
  - Acute lymphocytic leukaemia recurrent [Unknown]
  - White blood cell count decreased [Unknown]
